FAERS Safety Report 25532993 (Version 3)
Quarter: 2025Q3

REPORT INFORMATION
  Report Type: Spontaneous
  Country: JP (occurrence: JP)
  Receive Date: 20250709
  Receipt Date: 20250725
  Transmission Date: 20251021
  Serious: Yes (Hospitalization, Other)
  Sender: ORGANON
  Company Number: JP-ORGANON-O2506JPN001435

PATIENT
  Age: 80 Year
  Sex: Male
  Weight: 67.4 kg

DRUGS (13)
  1. MONTELUKAST SODIUM [Suspect]
     Active Substance: MONTELUKAST SODIUM
     Dosage: 10MG QD
     Route: 048
     Dates: start: 20250418, end: 20250505
  2. HERBALS [Suspect]
     Active Substance: HERBALS
     Route: 048
     Dates: start: 20250404
  3. HERBALS [Suspect]
     Active Substance: HERBALS
     Dosage: 1DF, 3 TIMES A DAY BEFORE EACH MEAL
     Route: 048
  4. VIBEGRON [Concomitant]
     Active Substance: VIBEGRON
     Route: 048
  5. TADALAFIL [Concomitant]
     Active Substance: TADALAFIL
     Route: 048
  6. ASPIRIN\VONOPRAZAN FUMARATE [Concomitant]
     Active Substance: ASPIRIN\VONOPRAZAN FUMARATE
     Route: 048
  7. ROSUVASTATIN [Concomitant]
     Active Substance: ROSUVASTATIN
     Route: 048
  8. DOTINURAD [Concomitant]
     Active Substance: DOTINURAD
     Route: 048
  9. AMLODIPINE\TELMISARTAN [Concomitant]
     Active Substance: AMLODIPINE\TELMISARTAN
     Route: 048
  10. TOFOGLIFLOZIN [Concomitant]
     Active Substance: TOFOGLIFLOZIN
     Route: 048
  11. KERENDIA [Concomitant]
     Active Substance: FINERENONE
     Route: 048
  12. SILODOSIN [Concomitant]
     Active Substance: SILODOSIN
     Route: 048
  13. ICOSAPENT ETHYL [Concomitant]
     Active Substance: ICOSAPENT ETHYL
     Route: 048

REACTIONS (2)
  - Anaphylactic reaction [Recovered/Resolved]
  - Immune thrombocytopenia [Recovered/Resolved]

NARRATIVE: CASE EVENT DATE: 20250506
